FAERS Safety Report 6874878-6 (Version None)
Quarter: 2010Q3

REPORT INFORMATION
  Report Type: 
  Country: None (occurrence: None)
  Receive Date: 20100723
  Receipt Date: 20090731
  Transmission Date: 20110219
  Serious: Yes (Hospitalization)
  Sender: FDA-Public Use
  Company Number: 2009-GWUS-0531

PATIENT
  Age: 56 Year
  Sex: Female

DRUGS (7)
  1. TAMBOCOR (FLECAINIDE ACETATE) [Suspect]
     Indication: ATRIAL FIBRILLATION
     Dosage: 100 MG;QD;PO
     Route: 048
  2. PULMICORT [Concomitant]
  3. ATROVENT [Concomitant]
  4. VENTOLIN [Concomitant]
  5. SEREVENT [Concomitant]
  6. PARACODIN /00063002/ [Concomitant]
  7. ACETYLCYSTEINE [Concomitant]

REACTIONS (14)
  - ATRIAL FIBRILLATION [None]
  - ATRIAL FLUTTER [None]
  - CYANOSIS [None]
  - ELECTROCARDIOGRAM QRS COMPLEX PROLONGED [None]
  - HAEMODYNAMIC INSTABILITY [None]
  - HEART RATE INCREASED [None]
  - HYPOTENSION [None]
  - OEDEMA [None]
  - OEDEMA PERIPHERAL [None]
  - ORTHOPNOEA [None]
  - PALPITATIONS [None]
  - RALES [None]
  - SINUS TACHYCARDIA [None]
  - TACHYCARDIA [None]
